FAERS Safety Report 19862994 (Version 1)
Quarter: 2021Q3

REPORT INFORMATION
  Report Type: Spontaneous
  Country: US (occurrence: US)
  Receive Date: 20210921
  Receipt Date: 20210921
  Transmission Date: 20211014
  Serious: Yes (Death, Other)
  Sender: FDA-Public Use
  Company Number: US-PERRIGO-21US025664

PATIENT
  Age: 75 Year
  Sex: Male

DRUGS (1)
  1. RANITIDINE HYDROCHLORIDE (156) [Suspect]
     Active Substance: RANITIDINE HYDROCHLORIDE
     Indication: GASTRIC ULCER
     Dosage: DOSE FREQUENCY: OTHER ? TWICE DAILY
     Route: 048
     Dates: start: 199709, end: 201909

REACTIONS (4)
  - Lung neoplasm malignant [Fatal]
  - Gastrointestinal carcinoma [Fatal]
  - Gastric cancer [Fatal]
  - Colorectal cancer [Fatal]

NARRATIVE: CASE EVENT DATE: 20190829
